FAERS Safety Report 5712365-9 (Version None)
Quarter: 2008Q2

REPORT INFORMATION
  Report Type: 
  Country: None (occurrence: None)
  Receive Date: 20080418
  Receipt Date: 20080407
  Transmission Date: 20081010
  Serious: Yes (Life-Threatening, Hospitalization)
  Sender: FDA-Public Use
  Company Number: 1-15996028

PATIENT
  Age: 33 Year
  Sex: Female

DRUGS (2)
  1. DYANCIN           (MINOCYCLINE HCL) [Suspect]
     Indication: ACNE
  2. DOXYCYCLINE [Concomitant]

REACTIONS (17)
  - ABDOMINAL PAIN [None]
  - ABDOMINAL PAIN UPPER [None]
  - ACUTE HEPATIC FAILURE [None]
  - ASCITES [None]
  - ASTHENIA [None]
  - AUTOIMMUNE DISORDER [None]
  - DRUG TOXICITY [None]
  - DYSPEPSIA [None]
  - ENCEPHALOPATHY [None]
  - FATIGUE [None]
  - HAEMODIALYSIS [None]
  - HEPATIC NECROSIS [None]
  - INTERNATIONAL NORMALISED RATIO INCREASED [None]
  - JAUNDICE [None]
  - LIVER TRANSPLANT [None]
  - MENTAL STATUS CHANGES [None]
  - RENAL FAILURE [None]
